FAERS Safety Report 6933211-1 (Version None)
Quarter: 2010Q3

REPORT INFORMATION
  Report Type: 
  Country: None (occurrence: None)
  Receive Date: 20100820
  Receipt Date: 20100811
  Transmission Date: 20110219
  Serious: Yes (Hospitalization)
  Sender: FDA-Public Use
  Company Number: DE-TEVA-228714ISR

PATIENT
  Sex: Male

DRUGS (17)
  1. PREDNISOLONE [Suspect]
     Indication: PROSTATE CANCER
     Route: 048
     Dates: start: 20081127, end: 20081129
  2. PREDNISOLONE [Suspect]
     Route: 048
     Dates: start: 20081118
  3. ABIRATERONE ACETATE OR PLACEBO [Suspect]
     Indication: PROSTATE CANCER
     Route: 048
     Dates: start: 20081127, end: 20081129
  4. ABIRATERONE ACETATE OR PLACEBO [Suspect]
     Route: 048
     Dates: start: 20081219
  5. CARVEDILOL [Concomitant]
     Indication: HYPERTENSION
     Route: 048
     Dates: start: 20030201
  6. SIMVASTATIN [Concomitant]
     Indication: HYPERLIPIDAEMIA
     Route: 048
     Dates: start: 20030201
  7. PRETERAX(NOLIPREL) [Concomitant]
     Indication: HYPERTENSION
     Route: 048
     Dates: start: 20050201
  8. PANTOPRAZOLE SODIUM [Concomitant]
     Indication: GASTRITIS PROPHYLAXIS
     Route: 048
     Dates: start: 20050201
  9. ONDANSETRON [Concomitant]
     Indication: PROPHYLAXIS OF NAUSEA AND VOMITING
     Route: 048
     Dates: start: 20080501
  10. ONDANSETRON [Concomitant]
  11. LACTULOSE [Concomitant]
     Indication: CONSTIPATION
     Route: 048
     Dates: start: 20081027
  12. INDOMETHACIN SODIUM [Concomitant]
     Indication: CANCER PAIN
     Route: 054
     Dates: start: 20081012, end: 20081130
  13. NULYTELY [Concomitant]
     Indication: CONSTIPATION
     Route: 048
     Dates: start: 20081027
  14. LEUPRORELIN [Concomitant]
     Indication: HORMONE THERAPY
     Route: 058
     Dates: start: 20050101
  15. CEFUROXIME AXETIL [Concomitant]
     Indication: URINARY TRACT INFECTION
     Dates: start: 20081117
  16. ZOLEDRONIC ACID [Concomitant]
     Indication: METASTASES TO BONE
     Route: 042
     Dates: start: 20081112
  17. IBUPROFEN [Concomitant]
     Indication: PAIN
     Route: 048
     Dates: start: 20080901

REACTIONS (1)
  - HERPES ZOSTER [None]
